FAERS Safety Report 21471595 (Version 1)
Quarter: 2022Q4

REPORT INFORMATION
  Report Type: Spontaneous
  Country: DE (occurrence: DE)
  Receive Date: 20221018
  Receipt Date: 20221018
  Transmission Date: 20230113
  Serious: No
  Sender: FDA-Public Use
  Company Number: DE-DCGMA-22199465

PATIENT
  Age: 70 Year
  Sex: Male

DRUGS (1)
  1. PAXLOVID [Suspect]
     Active Substance: NIRMATRELVIR\RITONAVIR
     Dosage: 150/100 MG
     Route: 048
     Dates: start: 20220701, end: 20220706

REACTIONS (4)
  - Product prescribing error [Recovered/Resolved]
  - Product administration error [Recovered/Resolved]
  - Product communication issue [Recovered/Resolved]
  - Single component of a two-component product administered [Recovered/Resolved]

NARRATIVE: CASE EVENT DATE: 20220701
